FAERS Safety Report 8558212-1 (Version None)
Quarter: 2012Q3

REPORT INFORMATION
  Report Type: 
  Country: None (occurrence: None)
  Receive Date: 20120801
  Receipt Date: 20120719
  Transmission Date: 20120928
  Serious: No
  Sender: FDA-Public Use
  Company Number: US-ASTRAZENECA-2012SE51306

PATIENT
  Age: 54 Year
  Sex: Male

DRUGS (1)
  1. SEROQUEL [Suspect]
     Route: 048

REACTIONS (6)
  - MENTAL DISORDER [None]
  - DRUG WITHDRAWAL SYNDROME [None]
  - VISUAL IMPAIRMENT [None]
  - PERSONALITY DISORDER [None]
  - DRUG DOSE OMISSION [None]
  - AGGRESSION [None]
